FAERS Safety Report 4507234-6 (Version None)
Quarter: 2004Q4

REPORT INFORMATION
  Report Type: 
  Country: None (occurrence: None)
  Receive Date: 20041116
  Receipt Date: 20041028
  Transmission Date: 20050328
  Serious: Yes (Other)
  Sender: FDA-Public Use
  Company Number: 601398

PATIENT
  Age: 14 Month
  Sex: Male
  Weight: 12 kg

DRUGS (4)
  1. ADVATE [Suspect]
     Indication: FACTOR VIII DEFICIENCY
     Dosage: 500 IU, INTRAVENOUS
     Dates: start: 20040401, end: 20040714
  2. ADVATE [Suspect]
  3. ADVATE [Suspect]
  4. ADVATE [Suspect]

REACTIONS (3)
  - CENTRAL VENOUS CATHETERISATION [None]
  - COAGULATION FACTOR VIII LEVEL INCREASED [None]
  - FACTOR VIII INHIBITION [None]
